FAERS Safety Report 9118120 (Version 1)
Quarter: 2013Q1

REPORT INFORMATION
  Report Type: Report from Study
  Country: US (occurrence: US)
  Receive Date: 20130129
  Receipt Date: 20130129
  Transmission Date: 20140127
  Serious: No
  Sender: FDA-Public Use
  Company Number: US-ABBOTT-12P-163-0936643-00

PATIENT
  Sex: Female
  Weight: 64.92 kg

DRUGS (3)
  1. HUMIRA 40 MG/ 0.8 ML PRE-FILLED SYRINGE [Suspect]
     Indication: COLITIS ULCERATIVE
     Dates: start: 201111, end: 201112
  2. BALSALAZIDE DISODIUM [Concomitant]
     Indication: COLITIS ULCERATIVE
  3. MERCAPTOPURINE [Concomitant]
     Indication: COLITIS ULCERATIVE

REACTIONS (1)
  - Rash [Recovered/Resolved]
